FAERS Safety Report 19919231 (Version 1)
Quarter: 2021Q4

REPORT INFORMATION
  Report Type: Spontaneous
  Country: FR (occurrence: FR)
  Receive Date: 20211004
  Receipt Date: 20211004
  Transmission Date: 20220304
  Serious: Yes (Hospitalization)
  Sender: FDA-Public Use
  Company Number: FR-ALSI-2021000293

PATIENT
  Age: 20 Year
  Sex: Female

DRUGS (1)
  1. NITROUS OXIDE [Suspect]
     Active Substance: NITROUS OXIDE
     Indication: Substance use
     Route: 055

REACTIONS (2)
  - Road traffic accident [Recovered/Resolved]
  - Substance use [Recovered/Resolved]

NARRATIVE: CASE EVENT DATE: 20210921
